FAERS Safety Report 5386122-X (Version None)
Quarter: 2007Q3

REPORT INFORMATION
  Report Type: 
  Country: None (occurrence: None)
  Receive Date: 20070711
  Receipt Date: 20070711
  Transmission Date: 20080115
  Serious: No
  Sender: FDA-Public Use
  Company Number: None

PATIENT
  Sex: Female

DRUGS (3)
  1. VENLAFAXINE HCL EXTENDED-RELEASE [Suspect]
     Indication: BIPOLAR I DISORDER
     Dosage: 375 MG PO } SEV WEEKS
     Route: 048
  2. VENLAFAXINE HCL EXTENDED-RELEASE [Suspect]
  3. MIRTAZAPINE [Suspect]
     Dosage: 45 MG PO HS RECENT INCREASE
     Route: 048

REACTIONS (6)
  - ELECTROCARDIOGRAM QT PROLONGED [None]
  - HYPERREFLEXIA [None]
  - PSYCHOTIC DISORDER [None]
  - SEROTONIN SYNDROME [None]
  - TACHYCARDIA [None]
  - TREMOR [None]
